FAERS Safety Report 19475984 (Version 1)
Quarter: 2021Q2

REPORT INFORMATION
  Report Type: Spontaneous
  Country: JP (occurrence: JP)
  Receive Date: 20210630
  Receipt Date: 20210630
  Transmission Date: 20210717
  Serious: Yes (Congenital Anomaly, Other)
  Sender: FDA-Public Use
  Company Number: JP-ASTELLAS-2021JP012594

PATIENT
  Sex: Female

DRUGS (3)
  1. GRACEPTOR [Suspect]
     Active Substance: TACROLIMUS
     Indication: IMMUNOSUPPRESSANT DRUG THERAPY
  2. GRACEPTOR [Suspect]
     Active Substance: TACROLIMUS
     Indication: FOETAL EXPOSURE DURING PREGNANCY
     Dosage: 1.0 MG/DAY, UNKNOWN FREQ.
     Route: 064
  3. GRACEPTOR [Suspect]
     Active Substance: TACROLIMUS
     Indication: EXPOSURE VIA BREAST MILK

REACTIONS (4)
  - Respiratory tract malformation [Unknown]
  - Low birth weight baby [Unknown]
  - Pulmonary malformation [Unknown]
  - Tracheomalacia [Unknown]
